FAERS Safety Report 6012590-6 (Version None)
Quarter: 2008Q4

REPORT INFORMATION
  Report Type: 
  Country: None (occurrence: None)
  Receive Date: 20081217
  Receipt Date: 20081204
  Transmission Date: 20090506
  Serious: Yes (Other)
  Sender: FDA-Public Use
  Company Number: 1-17036495

PATIENT
  Age: 69 Year
  Sex: Female

DRUGS (4)
  1. ZONISAMIDE [Suspect]
     Indication: TRIGEMINAL NEURALGIA
     Dosage: UNK, UNK, ORAL
     Route: 048
     Dates: start: 20020101, end: 20030810
  2. MINOCYCLINE HYDROCHLORIDE [Suspect]
     Indication: PHARYNGITIS
     Dosage: UNK, UNK, ORAL
     Route: 048
     Dates: start: 20030806, end: 20030810
  3. MINOCYCLINE HYDROCHLORIDE [Suspect]
     Indication: PYREXIA
     Dosage: UNK, UNK, ORAL
     Route: 048
     Dates: start: 20030806, end: 20030810
  4. CARBAMAZEPINE [Suspect]
     Indication: TRIGEMINAL NEURALGIA
     Dosage: UNK, UNK, ORAL
     Route: 048
     Dates: start: 20020101, end: 20030810

REACTIONS (7)
  - ALANINE AMINOTRANSFERASE INCREASED [None]
  - DRUG RASH WITH EOSINOPHILIA AND SYSTEMIC SYMPTOMS [None]
  - GAMMA-GLUTAMYLTRANSFERASE INCREASED [None]
  - LYMPHADENITIS [None]
  - PEMPHIGOID [None]
  - PERIVASCULAR DERMATITIS [None]
  - PHARYNGITIS [None]
